FAERS Safety Report 8050452-3 (Version None)
Quarter: 2012Q1

REPORT INFORMATION
  Report Type: 
  Country: None (occurrence: None)
  Receive Date: 20120117
  Receipt Date: 20120103
  Transmission Date: 20120608
  Serious: Yes (Death, Other)
  Sender: FDA-Public Use
  Company Number: FR-CELGENEUS-056-50794-12010283

PATIENT

DRUGS (2)
  1. VIDAZA [Suspect]
  2. VIDAZA [Suspect]
     Route: 065

REACTIONS (4)
  - ACUTE MYELOID LEUKAEMIA [None]
  - CONDITION AGGRAVATED [None]
  - DEATH [None]
  - MYELODYSPLASTIC SYNDROME [None]
